FAERS Safety Report 5579004-1 (Version None)
Quarter: 2008Q1

REPORT INFORMATION
  Report Type: 
  Country: None (occurrence: None)
  Receive Date: 20080102
  Receipt Date: 20071203
  Transmission Date: 20080703
  Serious: No
  Sender: FDA-Public Use
  Company Number: US-ASTRAZENECA-2007UW27564

PATIENT
  Age: 57 Year
  Sex: Female

DRUGS (3)
  1. SEROQUEL [Suspect]
     Route: 048
  2. SEROQUEL [Suspect]
     Dosage: DOSE REDUCED
     Route: 048
  3. SEROQUEL [Suspect]
     Dosage: DOSE INCREASED
     Route: 048

REACTIONS (1)
  - NEUTROPENIA [None]
